FAERS Safety Report 4771039-1 (Version None)
Quarter: 2005Q3

REPORT INFORMATION
  Report Type: 
  Country: None (occurrence: None)
  Receive Date: 20050914
  Receipt Date: 20050830
  Transmission Date: 20060218
  Serious: Yes (Hospitalization)
  Sender: FDA-Public Use
  Company Number: 2005-01416

PATIENT
  Age: 65 Year
  Sex: Female
  Weight: 67 kg

DRUGS (7)
  1. VELCADE [Suspect]
     Indication: MULTIPLE MYELOMA
     Dosage: 2.25 MG, INTRAVENOUS
     Route: 042
     Dates: start: 20050530, end: 20050628
  2. MELPHALAN(MELPHALAN) VIAL [Suspect]
     Dosage: 14.00 MG, QOD, ORAL
     Route: 048
     Dates: start: 20050530, end: 20050603
  3. PREDNISONE [Suspect]
     Dosage: 90.00 MG, QOD, ORAL
     Route: 048
     Dates: start: 20050530, end: 20050603
  4. ONDANSETRON (ONDANSETRON) [Concomitant]
  5. METOPROLOL TARTRATE [Concomitant]
  6. GAVIRIN [Concomitant]
  7. FILGRASTIM (FILGRASTIM) [Concomitant]

REACTIONS (6)
  - AMAUROSIS [None]
  - ANGINA UNSTABLE [None]
  - CONTRAST MEDIA REACTION [None]
  - GASTRIC DISORDER [None]
  - MYOCARDIAL ISCHAEMIA [None]
  - PARAESTHESIA [None]
